FAERS Safety Report 20742962 (Version 2)
Quarter: 2022Q2

REPORT INFORMATION
  Report Type: Spontaneous
  Country: JP (occurrence: JP)
  Receive Date: 20220425
  Receipt Date: 20220503
  Transmission Date: 20220721
  Serious: No
  Sender: FDA-Public Use
  Company Number: JP-MSD-M2022-06340

PATIENT
  Age: 72 Year
  Sex: Female
  Weight: 48 kg

DRUGS (8)
  1. MOLNUPIRAVIR [Suspect]
     Active Substance: MOLNUPIRAVIR
     Indication: COVID-19 treatment
     Dosage: 800 MILLIGRAM, BID
     Route: 048
     Dates: start: 20220212, end: 20220216
  2. MIROGABALIN BESYLATE [Concomitant]
     Active Substance: MIROGABALIN BESYLATE
     Dosage: UNK
     Route: 048
     Dates: start: 20210705
  3. WARFARIN POTASSIUM [Concomitant]
     Active Substance: WARFARIN POTASSIUM
     Route: 048
  4. DIGOXIN [Concomitant]
     Active Substance: DIGOXIN
     Route: 048
  5. LINAGLIPTIN [Concomitant]
     Active Substance: LINAGLIPTIN
     Route: 048
  6. AMARYL [Concomitant]
     Active Substance: GLIMEPIRIDE
     Route: 048
  7. METFORMIN HYDROCHLORIDE [Concomitant]
     Active Substance: METFORMIN HYDROCHLORIDE
     Route: 048
  8. LEVOTHYROXINE SODIUM [Concomitant]
     Active Substance: LEVOTHYROXINE SODIUM
     Dosage: UNK
     Route: 048

REACTIONS (1)
  - Diarrhoea [Unknown]

NARRATIVE: CASE EVENT DATE: 20220213
